FAERS Safety Report 8785758 (Version 1)
Quarter: 2012Q4

REPORT INFORMATION
  Report Type: 
  Country: US (occurrence: US)
  Receive Date: 20120914
  Receipt Date: 20120914
  Transmission Date: 20130627
  Serious: Yes (Other)
  Sender: FDA-Public Use
  Company Number: US-ELI_LILLY_AND_COMPANY-US201005003580

PATIENT
  Age: 55 Year
  Sex: Female

DRUGS (2)
  1. HUMATROPE [Suspect]
     Indication: HYPOPITUITARISM
     Dosage: 0.20 mg, qd
  2. COPAXONE [Concomitant]

REACTIONS (5)
  - Multiple sclerosis [Not Recovered/Not Resolved]
  - Nasopharyngitis [Not Recovered/Not Resolved]
  - Malaise [Recovered/Resolved]
  - Feeling abnormal [Unknown]
  - Drug dose omission [Unknown]
